FAERS Safety Report 9664944 (Version 1)
Quarter: 2013Q4

REPORT INFORMATION
  Report Type: Spontaneous
  Country: US (occurrence: US)
  Receive Date: 20131101
  Receipt Date: 20131101
  Transmission Date: 20140711
  Serious: Yes (Other)
  Sender: FDA-Public Use
  Company Number: US-PFIZER INC-2013312570

PATIENT
  Age: 63 Year
  Sex: Female
  Weight: 72.56 kg

DRUGS (6)
  1. LYRICA [Suspect]
     Indication: DIABETIC NEUROPATHY
     Dosage: 300 MG, DAILY
     Route: 048
  2. LYRICA [Suspect]
     Indication: BURNING SENSATION
     Dosage: 150 MG(75MG X 2 CAPSULES), DAILY
     Route: 048
  3. LYRICA [Suspect]
     Indication: PARAESTHESIA
     Dosage: UNK, DAILY
     Route: 048
     Dates: end: 201310
  4. LYRICA [Suspect]
     Indication: HYPOAESTHESIA
  5. BENAZEPRIL [Concomitant]
     Indication: HYPERTENSION
     Dosage: UNK, DAILY
  6. HYDROCHLOROTHIAZIDE [Concomitant]
     Indication: HYPERTENSION
     Dosage: (HALF A TABLET) DAILY

REACTIONS (3)
  - Weight decreased [Unknown]
  - Gastric disorder [Unknown]
  - Pain [Not Recovered/Not Resolved]
